FAERS Safety Report 8153471-1 (Version None)
Quarter: 2012Q1

REPORT INFORMATION
  Report Type: 
  Country: None (occurrence: None)
  Receive Date: 20120216
  Receipt Date: 20120216
  Transmission Date: 20120608
  Serious: Yes (Hospitalization)
  Sender: FDA-Public Use
  Company Number: None

PATIENT
  Sex: Female
  Weight: 55 kg

DRUGS (2)
  1. TAXOL [Suspect]
     Dosage: 113 MG
     Dates: end: 20110920
  2. CARBOPLATIN [Suspect]
     Dosage: 357 MG
     Dates: end: 20110920

REACTIONS (14)
  - DIZZINESS [None]
  - RENAL FAILURE ACUTE [None]
  - TOXICITY TO VARIOUS AGENTS [None]
  - IDIOSYNCRATIC DRUG REACTION [None]
  - MYOCARDIAL INFARCTION [None]
  - COLITIS [None]
  - HEPATIC FAILURE [None]
  - NEUROPATHY PERIPHERAL [None]
  - PLEURAL EFFUSION [None]
  - ACUTE POLYNEUROPATHY [None]
  - LARGE INTESTINAL OBSTRUCTION [None]
  - CONSTIPATION [None]
  - SEPTIC SHOCK [None]
  - NEUTROPENIA [None]
